FAERS Safety Report 7651834 (Version 1)
Quarter: 2020Q3

REPORT INFORMATION
  Report Type: Report from Study
  Country: DE (occurrence: DE)
  Receive Date: 20101101
  Receipt Date: 20101101
  Transmission Date: 20201104
  Serious: Yes (Hospitalization)
  Sender: FDA-Public Use
  Company Number: DE-JNJFOC-20071204731

PATIENT
  Age: 66 Year
  Sex: Male
  Weight: 115 kg

DRUGS (18)
  1. CNTO 1275 [Suspect]
     Active Substance: USTEKINUMAB
     Route: 058
  2. CNTO 1275 [Suspect]
     Active Substance: USTEKINUMAB
     Route: 058
  3. PLACEBO [Suspect]
     Active Substance: UNSPECIFIED INGREDIENT
     Route: 058
  4. CNTO 1275 [Suspect]
     Active Substance: USTEKINUMAB
     Route: 058
  5. LISINOPRIL. [Concomitant]
     Active Substance: LISINOPRIL
     Route: 048
  6. CNTO 1275 [Suspect]
     Active Substance: USTEKINUMAB
     Indication: PSORIASIS
     Route: 058
  7. PLACEBO [Suspect]
     Active Substance: UNSPECIFIED INGREDIENT
     Indication: PSORIASIS
     Route: 058
  8. PLACEBO [Suspect]
     Active Substance: UNSPECIFIED INGREDIENT
     Route: 058
  9. METOPROLOL. [Concomitant]
     Active Substance: METOPROLOL
     Route: 048
  10. CNTO 1275 [Suspect]
     Active Substance: USTEKINUMAB
     Route: 058
  11. CNTO 1275 [Suspect]
     Active Substance: USTEKINUMAB
     Route: 058
  12. CNTO 1275 [Suspect]
     Active Substance: USTEKINUMAB
     Route: 058
  13. PLACEBO [Suspect]
     Active Substance: UNSPECIFIED INGREDIENT
     Route: 058
  14. CNTO 1275 [Suspect]
     Active Substance: USTEKINUMAB
     Route: 058
  15. CNTO 1275 [Suspect]
     Active Substance: USTEKINUMAB
     Route: 058
  16. PLACEBO [Suspect]
     Active Substance: UNSPECIFIED INGREDIENT
     Route: 058
  17. CNTO 1275 [Suspect]
     Active Substance: USTEKINUMAB
     Route: 058
  18. LEVOTHYROXINE SODIUM. [Concomitant]
     Active Substance: LEVOTHYROXINE SODIUM
     Route: 048

REACTIONS (1)
  - Rectal adenoma [Recovered/Resolved]

NARRATIVE: CASE EVENT DATE: 20071101
